FAERS Safety Report 8602006-5 (Version None)
Quarter: 2012Q3

REPORT INFORMATION
  Report Type: 
  Country: None (occurrence: None)
  Receive Date: 20120817
  Receipt Date: 20120807
  Transmission Date: 20120928
  Serious: Yes (Hospitalization, Other)
  Sender: FDA-Public Use
  Company Number: US-PFIZER INC-2012165078

PATIENT
  Age: 44 Year
  Sex: Female
  Weight: 56.236 kg

DRUGS (50)
  1. LIPITOR [Suspect]
     Indication: HYPERLIPIDAEMIA
     Dosage: 40 MG, 1X/DAY
     Route: 048
     Dates: start: 20090401, end: 20120101
  2. PHENARGAN [Concomitant]
     Indication: NAUSEA
     Dosage: 25 MG, AS NEEDED
     Route: 054
  3. IBUPROFEN [Concomitant]
     Dosage: 200 MG, AS NEEDED
  4. SPIRIVA [Concomitant]
     Indication: ASTHMA
     Dosage: 18 UG, 1X/DAY
     Route: 045
  5. PROBIOTICS [Concomitant]
     Indication: DISBACTERIOSIS
     Dosage: UNK, 1X/DAY
     Route: 048
  6. ASMANEX TWISTHALER [Concomitant]
     Indication: ASTHMA
     Dosage: 220 UG, 2X/DAY
  7. DIPHENHYDRAMINE [Concomitant]
     Dosage: 25 MG, 1X/DAY
     Route: 048
  8. FOSAMAX [Concomitant]
     Indication: OSTEOPOROSIS
     Dosage: 70 MG, WEEKLY
  9. WARFARIN [Concomitant]
     Indication: DEEP VEIN THROMBOSIS
     Dosage: 5 MG, 1X/DAY
     Route: 048
     Dates: end: 20120501
  10. WARFARIN [Concomitant]
     Dosage: 5 MG, 1X/DAY, REST OF THE WEEK EXPECT THURSDAY
  11. SOMA [Concomitant]
     Indication: PAIN
  12. TRAZODONE [Concomitant]
     Dosage: UNK, AS NEEDED
  13. TYLENOL [Concomitant]
     Dosage: 325 MG, EVERY 4 HOURS, AS NEEDED
     Route: 048
  14. MIRALAX [Concomitant]
     Indication: CONSTIPATION
     Dosage: UNK, AS NEEDED
     Route: 048
  15. IRON [Concomitant]
     Dosage: UNK
  16. ALBUTEROL [Concomitant]
     Indication: ASTHMA
     Dosage: 90 UG, 2 PUFFS DAILY AS NEEDED
     Route: 055
  17. DANAZOL [Concomitant]
     Indication: HEREDITARY ANGIOEDEMA
     Dosage: 100 MG, 2 IN 1 D
     Route: 048
  18. DILAUDID [Concomitant]
     Dosage: 1 MG, AS NEEDED
     Route: 042
  19. TRAZODONE [Concomitant]
     Indication: INSOMNIA
     Dosage: 100 MG, 1X/DAY
     Route: 048
  20. WARFARIN [Concomitant]
     Dosage: 7.5 MG, 1X/DAY, THURSDAY
     Route: 048
     Dates: start: 20120501
  21. SPIRIVA [Concomitant]
     Indication: CHRONIC OBSTRUCTIVE PULMONARY DISEASE
  22. COLACE [Concomitant]
     Indication: CONSTIPATION
     Dosage: 100 MG, 1X/DAY
     Route: 048
  23. LIPITOR [Suspect]
     Indication: BLOOD TRIGLYCERIDES
  24. FERROUS GLUCONATE [Concomitant]
     Dosage: UNK, 1X/DAY
  25. NORTRIPTYLINE [Concomitant]
     Indication: PAIN
     Dosage: 25 MG, 1X/DAY
     Route: 048
  26. PREVACID [Concomitant]
     Indication: GASTROOESOPHAGEAL REFLUX DISEASE
     Dosage: 30 MG, 1X/DAY, EVERY MORNING
     Route: 048
  27. ZOFRAN [Concomitant]
     Indication: NAUSEA
     Dosage: 4 MG, EVERY 6 HOURS AS NEEDED
  28. ZOLOFT [Concomitant]
     Dosage: 50 MG, 1X/DAY
     Route: 048
  29. RESTORIL [Concomitant]
     Dosage: UNK, AS NEEDED
  30. CINRYZE [Suspect]
     Indication: HEREDITARY ANGIOEDEMA
     Dosage: 1000 UNIT , 3X/WEEK
     Route: 042
     Dates: start: 20100101
  31. MAGNESIUM CITRATE [Concomitant]
     Indication: CONSTIPATION
     Dosage: UNK, AS NEEDED
     Route: 048
  32. ATENOLOL [Concomitant]
     Indication: HYPERTENSION
     Dosage: 50 MG, 1X/DAY
     Route: 048
  33. DILAUDID [Concomitant]
     Indication: PAIN
     Dosage: 2 MG, AS NEEDED
  34. DILANTIN [Concomitant]
     Indication: CONVULSION
     Dosage: 400 MG, 1X/DAY, AT BEDTIME
  35. FLEXERIL [Concomitant]
     Dosage: UNK
  36. EPIPEN [Concomitant]
     Indication: HYPERSENSITIVITY
     Dosage: 0.3 MG, AS NEEDED
  37. FIORICET [Concomitant]
     Indication: MIGRAINE
     Dosage: 325/50/50, UNK
  38. KALBITOR [Concomitant]
     Indication: HEREDITARY ANGIOEDEMA
     Dosage: 30 MG, UNK
     Route: 058
  39. NORTRIPTYLINE [Concomitant]
     Indication: INSOMNIA
     Dosage: 10 MG, AT BEDTIME AS NEEDED
  40. TYLENOL [Concomitant]
     Dosage: 500 MG, AS NEEDED
  41. DANAZOL [Concomitant]
     Dosage: 200 MG, 2X/DAY
  42. NASONEX [Concomitant]
     Indication: SEASONAL ALLERGY
     Dosage: 440 UG, (220 UG, 2 IN 1D)
     Route: 045
  43. OXYCODONE [Concomitant]
     Indication: PAIN
     Dosage: 5 MG, AS NEEDED
     Route: 048
  44. WARFARIN [Concomitant]
     Indication: PULMONARY EMBOLISM
     Dosage: 10 MG, 1X/DAY
     Route: 048
     Dates: start: 20120501, end: 20120501
  45. SOMA [Concomitant]
     Indication: MUSCLE RELAXANT THERAPY
     Dosage: 1050 MG (350 MG, 3 IN 1 D)
     Route: 048
  46. DULCOLAX [Concomitant]
     Indication: FAECES HARD
     Dosage: UNK
     Route: 048
  47. DILANTIN [Concomitant]
     Indication: EPILEPSY
     Dosage: 100 MG IN THE MORNING AND 400 MG IN THE EVENING
     Route: 048
  48. METAMUCIL-2 [Concomitant]
     Indication: CONSTIPATION
     Dosage: UNK
     Route: 048
  49. ASPIRIN [Concomitant]
     Dosage: 81 MG, DAILY
     Route: 048
  50. COUMADIN [Concomitant]
     Indication: PULMONARY EMBOLISM
     Dosage: UNK

REACTIONS (8)
  - INAPPROPRIATE SCHEDULE OF DRUG ADMINISTRATION [None]
  - PANCREATITIS [None]
  - PROTHROMBIN TIME PROLONGED [None]
  - HEPATIC ENZYME INCREASED [None]
  - HEREDITARY ANGIOEDEMA [None]
  - URINARY TRACT INFECTION [None]
  - TRANSAMINASES INCREASED [None]
  - ANAEMIA [None]
